FAERS Safety Report 10265638 (Version 1)
Quarter: 2014Q2

REPORT INFORMATION
  Report Type: Spontaneous
  Country: US (occurrence: None)
  Receive Date: 20140625
  Receipt Date: 20140625
  Transmission Date: 20141212
  Serious: Yes (Hospitalization)
  Sender: FDA-Public Use
  Company Number: None

PATIENT
  Sex: Male
  Weight: 78.02 kg

DRUGS (11)
  1. PHENYLEPHRINE [Suspect]
     Indication: EYE DISORDER
     Dosage: OK WITH DOCTOR, DR KEPT INSERTING FOR 1 HOUR FOR GLAUCOMA TESTING, EYE DROPS FOR DILATION??IN DROPS FORM WITH PILLS
  2. RANITIDINE [Concomitant]
  3. SIMVASTATIN [Concomitant]
  4. ASPIRIN [Concomitant]
  5. VIT D3 [Concomitant]
  6. FRAVDOPROST EYE DROPS [Concomitant]
  7. NITROGLYCERIN [Concomitant]
  8. LOTREL [Concomitant]
  9. DORZOLAMIDE [Concomitant]
  10. TIMOLOL [Concomitant]
  11. LEVOTHYROXINE [Concomitant]

REACTIONS (10)
  - Visual impairment [None]
  - Urinary incontinence [None]
  - Diarrhoea [None]
  - Penile size reduced [None]
  - Dementia [None]
  - Balance disorder [None]
  - Pyrexia [None]
  - Fatigue [None]
  - Hyperhidrosis [None]
  - Decreased appetite [None]
